FAERS Safety Report 22609210 (Version 7)
Quarter: 2023Q4

REPORT INFORMATION
  Report Type: Spontaneous
  Country: CA (occurrence: CA)
  Receive Date: 20230616
  Receipt Date: 20231109
  Transmission Date: 20240110
  Serious: No
  Sender: FDA-Public Use
  Company Number: CA-PFIZER INC-202201356469

PATIENT
  Age: 40 Year
  Sex: Female
  Weight: 56 kg

DRUGS (3)
  1. ABRILADA [Suspect]
     Active Substance: ADALIMUMAB-AFZB
     Indication: Crohn^s disease
     Dosage: 1 DF, WEEK 0: 160MG, WEEK 2: 80MG THEN 40 MG EVERY WEEK
     Route: 058
     Dates: start: 20230213
  2. ABRILADA [Suspect]
     Active Substance: ADALIMUMAB-AFZB
     Indication: Hidradenitis
     Dosage: 1 UNK
     Route: 058
     Dates: start: 20230515
  3. ABRILADA [Suspect]
     Active Substance: ADALIMUMAB-AFZB
     Dosage: 40 MG, WEEKLY
     Dates: start: 2023

REACTIONS (4)
  - Drug ineffective [Unknown]
  - Drug dose omission by device [Unknown]
  - Device mechanical issue [Unknown]
  - Arthralgia [Unknown]

NARRATIVE: CASE EVENT DATE: 20230101
